FAERS Safety Report 19099987 (Version 8)
Quarter: 2022Q2

REPORT INFORMATION
  Report Type: Report from Study
  Country: US (occurrence: US)
  Receive Date: 20210407
  Receipt Date: 20220616
  Transmission Date: 20220721
  Serious: Yes (Hospitalization, Other)
  Sender: FDA-Public Use
  Company Number: US-AMRYT PHARMACEUTICALS DAC-AEGR005112

PATIENT
  Age: 21 Year
  Sex: Female
  Weight: 61.224 kg

DRUGS (32)
  1. METRELEPTIN [Suspect]
     Active Substance: METRELEPTIN
     Indication: Familial partial lipodystrophy
     Dosage: 5.0 MILLIGRAM, QD
     Route: 058
     Dates: start: 20201008
  2. METRELEPTIN [Suspect]
     Active Substance: METRELEPTIN
     Dosage: 5.0 MILLIGRAM, QD
     Dates: start: 20130418
  3. BACTERIOSTATIC WATER [Concomitant]
     Active Substance: WATER
     Indication: Product used for unknown indication
  4. TRETINOIN [Concomitant]
     Active Substance: TRETINOIN
     Indication: Product used for unknown indication
  5. PROAIR HFA [Concomitant]
     Active Substance: ALBUTEROL SULFATE
     Indication: Product used for unknown indication
  6. ACTOS [Concomitant]
     Active Substance: PIOGLITAZONE HYDROCHLORIDE
     Indication: Diabetes mellitus
     Dosage: 30 MILLIGRAM, QD
     Route: 048
  7. LOVAZA [Concomitant]
     Active Substance: OMEGA-3-ACID ETHYL ESTERS
     Indication: Hypertriglyceridaemia
     Dosage: 2 GRAM, BID
     Route: 048
     Dates: start: 2012
  8. NAPROXEN [Concomitant]
     Active Substance: NAPROXEN
     Indication: Arthralgia
     Dosage: 500 MILLIGRAM, BID
     Route: 048
     Dates: start: 20190612
  9. METFORMIN HYDROCHLORIDE [Concomitant]
     Active Substance: METFORMIN HYDROCHLORIDE
     Indication: Diabetes mellitus
     Dosage: 1000 MILLIGRAM, BID
     Route: 048
     Dates: start: 20130520
  10. METFORMIN HYDROCHLORIDE [Concomitant]
     Active Substance: METFORMIN HYDROCHLORIDE
     Dosage: 2000 MILLIGRAM, BID
  11. LISINOPRIL [Concomitant]
     Active Substance: LISINOPRIL
     Indication: Hypertension
     Dosage: 30 MILLIGRAM, QD
     Route: 048
  12. LAMICTAL [Concomitant]
     Active Substance: LAMOTRIGINE
     Indication: Depression
     Dosage: 25 MILLIGRAM, BID
     Route: 048
     Dates: start: 20190620
  13. HUMULIN R [Concomitant]
     Active Substance: INSULIN HUMAN
     Indication: Diabetes mellitus
     Dosage: 100 INTERNATIONAL UNIT, CONTINOUS VIA PUMP
     Route: 058
     Dates: start: 2019
  14. FENOFIBRATE [Concomitant]
     Active Substance: FENOFIBRATE
     Indication: Hypertriglyceridaemia
     Dosage: 160 MILLIGRAM, QD
     Route: 048
     Dates: start: 20141018
  15. ERGOCALCIFEROL [Concomitant]
     Active Substance: ERGOCALCIFEROL
     Indication: Vitamin D decreased
     Dosage: 50000 INTERNATIONAL UNIT, WEEKLY
     Route: 048
  16. ERGOCALCIFEROL [Concomitant]
     Active Substance: ERGOCALCIFEROL
     Dosage: 1250 MILLIGRAM, QD
  17. STERILE WATER [Concomitant]
     Active Substance: WATER
     Indication: Product used for unknown indication
  18. KETOCONAZOLE [Concomitant]
     Active Substance: KETOCONAZOLE
     Indication: Seborrhoeic dermatitis
     Dosage: 1 APPLICATION 3 X WEEKLY
     Route: 061
     Dates: start: 20201012
  19. JARDIANCE [Concomitant]
     Active Substance: EMPAGLIFLOZIN
     Indication: Diabetes mellitus
     Dosage: 10 MILLIGRAM, QD
     Route: 048
     Dates: start: 20201221, end: 20210323
  20. JARDIANCE [Concomitant]
     Active Substance: EMPAGLIFLOZIN
     Dosage: 25 MILLIGRAM, QD
     Route: 048
     Dates: start: 20210324
  21. DICYCLOMINE [Concomitant]
     Active Substance: DICYCLOMINE HYDROCHLORIDE
     Indication: Gastrooesophageal reflux disease
     Dosage: 10 MILLIGRAM, QID
     Route: 048
     Dates: start: 20210324
  22. OMEGA-3-ACID ETHYL ESTERS [Concomitant]
     Active Substance: OMEGA-3-ACID ETHYL ESTERS
     Indication: Hypertriglyceridaemia
     Dosage: 2 GRAM, BID
     Route: 048
     Dates: start: 2012
  23. PIOGLITAZONE [Concomitant]
     Active Substance: PIOGLITAZONE
     Indication: Diabetes mellitus
     Dosage: 30 MILLIGRAM, QD
     Route: 048
     Dates: start: 20211028
  24. ONDANSETRON [Concomitant]
     Active Substance: ONDANSETRON
     Indication: Gastrooesophageal reflux disease
     Dosage: 8 MILLIGRAM, PRN
     Route: 048
     Dates: start: 20211230
  25. ONDANSETRON [Concomitant]
     Active Substance: ONDANSETRON
     Indication: Colonoscopy
     Dosage: 4 MILLIGRAM, SINGLE
     Route: 042
     Dates: start: 20220307, end: 20220307
  26. ONDANSETRON [Concomitant]
     Active Substance: ONDANSETRON
     Indication: Nausea
     Dosage: 8 MILLIGRAM, PRN Q 8HOURS
  27. PROPOFOL [Concomitant]
     Active Substance: PROPOFOL
     Indication: Colonoscopy
     Dosage: 550 MILLIGRAM, SINGLE
     Route: 042
     Dates: start: 20220307, end: 20220307
  28. PHENYLEPHRINE [Concomitant]
     Active Substance: PHENYLEPHRINE HYDROCHLORIDE
     Indication: Colonoscopy
     Dosage: 200 MICROGRAM, SINGLE
     Route: 042
     Dates: start: 20220307, end: 20220307
  29. UREA [Concomitant]
     Active Substance: UREA
     Indication: Hyperkeratosis
     Dosage: UNK, BID
     Route: 061
     Dates: start: 20210603
  30. EMPAGLIFLOZIN [Concomitant]
     Active Substance: EMPAGLIFLOZIN
     Indication: Diabetes mellitus
     Dosage: 25 MILLIGRAM, QD
     Route: 048
  31. INSULIN NOS [Concomitant]
     Active Substance: INSULIN NOS
     Indication: Diabetes mellitus
     Dosage: 200 INTERNATIONAL UNIT, CONTINUOUS VIA PUMP
     Route: 058
  32. LAMOTRIGINE [Concomitant]
     Active Substance: LAMOTRIGINE
     Indication: Depression
     Dosage: 25 MILLIGRAM, BID
     Route: 048

REACTIONS (13)
  - Seizure [Unknown]
  - Hypertriglyceridaemia [Not Recovered/Not Resolved]
  - Blood glucose increased [Unknown]
  - Injection site pruritus [Recovered/Resolved]
  - Injection site irritation [Unknown]
  - Psychogenic seizure [Not Recovered/Not Resolved]
  - Back pain [Not Recovered/Not Resolved]
  - Chlamydial infection [Recovered/Resolved]
  - Hyperkeratosis [Not Recovered/Not Resolved]
  - Diabetic retinopathy [Not Recovered/Not Resolved]
  - Injection site reaction [Unknown]
  - Off label use [Unknown]
  - Drug ineffective [Unknown]

NARRATIVE: CASE EVENT DATE: 20201201
